FAERS Safety Report 8143433-2 (Version None)
Quarter: 2012Q1

REPORT INFORMATION
  Report Type: 
  Country: None (occurrence: None)
  Receive Date: 20120215
  Receipt Date: 20120215
  Transmission Date: 20120608
  Serious: Yes (Other)
  Sender: FDA-Public Use
  Company Number: None

PATIENT
  Age: 19 Year
  Sex: Female

DRUGS (3)
  1. ATAZANAVIR [Suspect]
     Indication: HIV INFECTION
     Dosage: 300 MG DAILY
  2. THIVADA [Concomitant]
  3. NORVIR [Concomitant]

REACTIONS (4)
  - JAUNDICE [None]
  - OCULAR ICTERUS [None]
  - RASH [None]
  - EPHELIDES [None]
